FAERS Safety Report 22255100 (Version 1)
Quarter: 2023Q2

REPORT INFORMATION
  Report Type: Report from Study
  Country: CO (occurrence: CO)
  Receive Date: 20230426
  Receipt Date: 20230426
  Transmission Date: 20230722
  Serious: Yes (Other)
  Sender: FDA-Public Use
  Company Number: CO-ABBVIE-4333640

PATIENT
  Age: 58 Year
  Sex: Female

DRUGS (4)
  1. HUMIRA [Suspect]
     Active Substance: ADALIMUMAB
     Indication: Hidradenitis
     Dosage: FORM STRENGTH WAS 40 MILLIGRAMS
     Route: 058
     Dates: end: 20230331
  2. HUMIRA [Suspect]
     Active Substance: ADALIMUMAB
  3. PREGABALIN [Suspect]
     Active Substance: PREGABALIN
     Indication: Fibromyalgia
     Dosage: 1 TABLET
     Route: 048
  4. ACETAMINOPHEN\CODEINE PHOSPHATE [Concomitant]
     Active Substance: ACETAMINOPHEN\CODEINE PHOSPHATE
     Indication: Fibromyalgia
     Route: 048

REACTIONS (8)
  - Abdominal hernia [Unknown]
  - Fat tissue increased [Unknown]
  - Hypersensitivity [Recovered/Resolved]
  - Somnolence [Recovering/Resolving]
  - Umbilical hernia [Unknown]
  - Hidradenitis [Not Recovered/Not Resolved]
  - Abdominal pain upper [Not Recovered/Not Resolved]
  - Hypersensitivity [Not Recovered/Not Resolved]

NARRATIVE: CASE EVENT DATE: 20221001
